FAERS Safety Report 4706212-1 (Version None)
Quarter: 2005Q2

REPORT INFORMATION
  Report Type: 
  Country: None (occurrence: None)
  Receive Date: 20050627
  Receipt Date: 20050415
  Transmission Date: 20051028
  Serious: No
  Sender: FDA-Public Use
  Company Number: IND-AE-05-SAN-018

PATIENT
  Age: 74 Year
  Sex: Female
  Weight: 58.9676 kg

DRUGS (5)
  1. SANCTURA [Suspect]
     Dosage: 20 MG-QD-ORAL
     Route: 048
     Dates: start: 20050412, end: 20050414
  2. SANCTURA [Suspect]
     Dosage: 20MG-BID-ORAL
     Route: 048
     Dates: start: 20050414, end: 20050415
  3. ZOCOR [Concomitant]
  4. ADVAIR DISKUS 100/50 [Concomitant]
  5. CARTIA XT [Concomitant]

REACTIONS (2)
  - CONSTIPATION [None]
  - DRY MOUTH [None]
